FAERS Safety Report 8282673-9 (Version None)
Quarter: 2012Q2

REPORT INFORMATION
  Report Type: 
  Country: None (occurrence: None)
  Receive Date: 20120411
  Receipt Date: 20120405
  Transmission Date: 20120825
  Serious: Yes (Hospitalization)
  Sender: FDA-Public Use
  Company Number: ACO_29285_2012

PATIENT
  Age: 58 Year
  Sex: Female
  Weight: 86.2 kg

DRUGS (5)
  1. SENNA /00142201/ (SENNA ALEXANDRINA) [Concomitant]
  2. CRANBERRY /01512301/ (VACCINIUM MACROCARPON) [Concomitant]
  3. AMPYRA [Suspect]
     Indication: GAIT DISTURBANCE
     Dosage: 10 MG, BID, ORAL, 10 MG, QD, ORAL, 10 MG, BID, ORAL
     Route: 048
     Dates: start: 20111201, end: 20111201
  4. AMPYRA [Suspect]
     Indication: GAIT DISTURBANCE
     Dosage: 10 MG, BID, ORAL, 10 MG, QD, ORAL, 10 MG, BID, ORAL
     Route: 048
     Dates: start: 20110101, end: 20111201
  5. VITAMIN B-12 [Concomitant]

REACTIONS (4)
  - MULTIPLE SCLEROSIS RELAPSE [None]
  - CYSTITIS [None]
  - URINARY TRACT INFECTION [None]
  - GAIT DISTURBANCE [None]
